FAERS Safety Report 7597759-1 (Version None)
Quarter: 2011Q3

REPORT INFORMATION
  Report Type: 
  Country: None (occurrence: None)
  Receive Date: 20110708
  Receipt Date: 20110701
  Transmission Date: 20111222
  Serious: Yes (Hospitalization)
  Sender: FDA-Public Use
  Company Number: FR-GLAXOSMITHKLINE-B0731440A

PATIENT
  Sex: Male

DRUGS (3)
  1. DOXORUBICIN HCL [Suspect]
     Indication: NEUROBLASTOMA
     Route: 042
     Dates: start: 20070823
  2. TOPOTECAN [Suspect]
     Indication: NEUROBLASTOMA
     Route: 042
     Dates: start: 20070823
  3. VINCRISTINE [Suspect]
     Indication: NEUROBLASTOMA
     Route: 042
     Dates: start: 20070823

REACTIONS (1)
  - FEBRILE BONE MARROW APLASIA [None]
